FAERS Safety Report 10202501 (Version 1)
Quarter: 2014Q2

REPORT INFORMATION
  Report Type: Report from Study
  Country: AR (occurrence: AR)
  Receive Date: 20140528
  Receipt Date: 20140528
  Transmission Date: 20141212
  Serious: Yes (Disabling, Other)
  Sender: FDA-Public Use
  Company Number: AR-ABBVIE-14P-007-1239906-00

PATIENT
  Sex: Female

DRUGS (1)
  1. HUMIRA [Suspect]
     Indication: RHEUMATOID ARTHRITIS
     Route: 058
     Dates: start: 20090901, end: 201404

REACTIONS (5)
  - Abasia [Unknown]
  - Joint swelling [Not Recovered/Not Resolved]
  - Localised infection [Unknown]
  - Infection [Unknown]
  - Drug ineffective [Not Recovered/Not Resolved]
